FAERS Safety Report 12927501 (Version 1)
Quarter: 2016Q4

REPORT INFORMATION
  Report Type: Spontaneous
  Country: US (occurrence: US)
  Receive Date: 20161109
  Receipt Date: 20161109
  Transmission Date: 20170207
  Serious: No
  Sender: FDA-Public Use
  Company Number: US-ALLERGAN-1666049US

PATIENT
  Age: 50 Year
  Sex: Male

DRUGS (3)
  1. ALPHAGAN P [Suspect]
     Active Substance: BRIMONIDINE TARTRATE
     Indication: GLAUCOMA
     Dosage: UNK
     Route: 047
     Dates: end: 20160728
  2. COSOPT [Concomitant]
     Active Substance: DORZOLAMIDE HYDROCHLORIDE\TIMOLOL MALEATE
     Indication: PRODUCT USED FOR UNKNOWN INDICATION
     Route: 047
  3. PRED FORTE [Suspect]
     Active Substance: PREDNISOLONE ACETATE
     Indication: INFLAMMATION
     Dosage: 1 GTT, TID
     Route: 047
     Dates: start: 2000, end: 201607

REACTIONS (7)
  - Stress [Not Recovered/Not Resolved]
  - Intraocular pressure test abnormal [Recovered/Resolved]
  - Ocular hyperaemia [Not Recovered/Not Resolved]
  - Drug dose omission [Unknown]
  - Visual acuity reduced [Not Recovered/Not Resolved]
  - Eye pain [Not Recovered/Not Resolved]
  - Eye irritation [Not Recovered/Not Resolved]

NARRATIVE: CASE EVENT DATE: 201607
